FAERS Safety Report 8008003-5 (Version None)
Quarter: 2011Q4

REPORT INFORMATION
  Report Type: 
  Country: None (occurrence: None)
  Receive Date: 20111227
  Receipt Date: 20111213
  Transmission Date: 20120403
  Serious: Yes (Other)
  Sender: FDA-Public Use
  Company Number: PHHY2011FR103455

PATIENT
  Sex: Female
  Weight: 53 kg

DRUGS (2)
  1. FEMARA [Suspect]
     Indication: BREAST CANCER
     Dosage: 2.5 MG, QD
     Route: 048
     Dates: start: 20091023, end: 20110801
  2. FEMARA [Suspect]
     Dosage: 2.5 MG, QD
     Route: 048
     Dates: start: 20110901

REACTIONS (8)
  - MULTIPLE SCLEROSIS [None]
  - STRABISMUS [None]
  - DIPLOPIA [None]
  - IIIRD NERVE PARALYSIS [None]
  - RETINAL VASCULAR OCCLUSION [None]
  - VITH NERVE PARALYSIS [None]
  - CSF OLIGOCLONAL BAND PRESENT [None]
  - DEMYELINATION [None]
